FAERS Safety Report 5815595-0 (Version None)
Quarter: 2008Q3

REPORT INFORMATION
  Report Type: 
  Country: None (occurrence: None)
  Receive Date: 20080718
  Receipt Date: 20080711
  Transmission Date: 20090109
  Serious: Yes (Other)
  Sender: FDA-Public Use
  Company Number: GB-PFIZER INC-2008059084

PATIENT
  Age: 72 Year
  Sex: Male
  Weight: 88 kg

DRUGS (7)
  1. CHANTIX [Suspect]
     Route: 048
  2. AMLODIPINE [Concomitant]
  3. BENDROFLUMETHIAZIDE [Concomitant]
  4. PERINDOPRIL ERBUMINE [Concomitant]
  5. SERETIDE [Concomitant]
  6. SIMVASTATIN [Concomitant]
  7. TIOTROPIUM BROMIDE [Concomitant]

REACTIONS (1)
  - POLYARTHRITIS [None]
